FAERS Safety Report 19649365 (Version 1)
Quarter: 2021Q3

REPORT INFORMATION
  Report Type: Spontaneous
  Country: US (occurrence: US)
  Receive Date: 20210802
  Receipt Date: 20210802
  Transmission Date: 20211014
  Serious: Yes (Other)
  Sender: FDA-Public Use
  Company Number: US-PURDUE PHARMA-USA-2021-0280098

PATIENT
  Age: 48 Year
  Sex: Male

DRUGS (7)
  1. HYDROMORPHONE [Concomitant]
     Active Substance: HYDROMORPHONE
     Indication: CHEST PAIN
     Dosage: 2 MG, UNK
     Route: 037
  2. DULOXETINE. [Suspect]
     Active Substance: DULOXETINE
     Indication: PRODUCT USED FOR UNKNOWN INDICATION
     Route: 065
  3. GABAPENTIN. [Suspect]
     Active Substance: GABAPENTIN
     Indication: CHEST PAIN
     Route: 048
  4. BUPIVACAIN [Concomitant]
     Active Substance: BUPIVACAINE
     Indication: CHEST PAIN
     Dosage: 4 MG, UNK
     Route: 037
  5. KETAMINE                           /00171202/ [Suspect]
     Active Substance: KETAMINE
     Indication: PRODUCT USED FOR UNKNOWN INDICATION
     Route: 041
  6. BUPRENORPHINE HYDROCHLORIDE AND NALOXONE HYDROCHLORIDE [Suspect]
     Active Substance: BUPRENORPHINE HYDROCHLORIDE\NALOXONE HYDROCHLORIDE
     Indication: CHEST PAIN
     Dosage: 24/6 MG, UNK
     Route: 060
  7. CLONIDINE. [Concomitant]
     Active Substance: CLONIDINE
     Indication: CHEST PAIN
     Dosage: 336.26 MCG, UNK
     Route: 037

REACTIONS (2)
  - Axillary pain [Unknown]
  - Neuronal neuropathy [Unknown]
